FAERS Safety Report 9351016 (Version 1)
Quarter: 2013Q2

REPORT INFORMATION
  Report Type: Spontaneous
  Country: US (occurrence: US)
  Receive Date: 20130617
  Receipt Date: 20130617
  Transmission Date: 20140414
  Serious: No
  Sender: FDA-Public Use
  Company Number: US-BAYER-2013-072731

PATIENT
  Age: 41 Year
  Sex: Female

DRUGS (1)
  1. MAGNEVIST [Suspect]
     Indication: NUCLEAR MAGNETIC RESONANCE IMAGING
     Dosage: 12ML OF A 15ML VIAL.
     Dates: start: 20130507, end: 20130507

REACTIONS (1)
  - Urticaria [Recovered/Resolved]
